FAERS Safety Report 7920432-4 (Version None)
Quarter: 2011Q4

REPORT INFORMATION
  Report Type: 
  Country: None (occurrence: None)
  Receive Date: 20111117
  Receipt Date: 20111107
  Transmission Date: 20120403
  Serious: Yes (Hospitalization)
  Sender: FDA-Public Use
  Company Number: PHHY2011JP96424

PATIENT
  Age: 71 Year
  Sex: Male

DRUGS (3)
  1. MYCOPHENOLATE MOFETIL (CELLCEPT) [Concomitant]
     Dosage: 1000 MG, UNK
     Route: 048
     Dates: start: 20090101, end: 20111030
  2. NEORAL [Suspect]
     Indication: PROPHYLAXIS AGAINST TRANSPLANT REJECTION
     Dosage: 100 MG
     Route: 048
     Dates: start: 20090101, end: 20111030
  3. MEDROL [Concomitant]
     Dosage: 4 MG
     Route: 048
     Dates: start: 20090101, end: 20111030

REACTIONS (3)
  - ALTERED STATE OF CONSCIOUSNESS [None]
  - BRAIN STEM INFARCTION [None]
  - CEREBRAL INFARCTION [None]
